FAERS Safety Report 12579016 (Version 2)
Quarter: 2016Q3

REPORT INFORMATION
  Report Type: Spontaneous
  Country: IT (occurrence: IT)
  Receive Date: 20160721
  Receipt Date: 20160727
  Transmission Date: 20161109
  Serious: Yes (Other)
  Sender: FDA-Public Use
  Company Number: PHHY2016IT099693

PATIENT
  Age: 80 Year
  Sex: Male

DRUGS (1)
  1. ZOMETA [Suspect]
     Active Substance: ZOLEDRONIC ACID
     Indication: METASTASES TO BONE
     Dosage: 4 MG, CYCLIC (EVERY 28 DAYS)
     Route: 042
     Dates: start: 201401, end: 20160301

REACTIONS (2)
  - Osteonecrosis of jaw [Unknown]
  - Pain [Unknown]

NARRATIVE: CASE EVENT DATE: 20160620
